FAERS Safety Report 20773691 (Version 1)
Quarter: 2022Q2

REPORT INFORMATION
  Report Type: Spontaneous
  Country: HR (occurrence: HR)
  Receive Date: 20220502
  Receipt Date: 20220502
  Transmission Date: 20220721
  Serious: Yes (Hospitalization, Other)
  Sender: FDA-Public Use
  Company Number: HR-BRISTOL-MYERS SQUIBB COMPANY-2022-030396

PATIENT
  Age: 70 Year
  Sex: Male

DRUGS (14)
  1. ELIQUIS [Suspect]
     Active Substance: APIXABAN
     Indication: Atrial fibrillation
     Route: 065
     Dates: start: 20210105
  2. ELIQUIS [Suspect]
     Active Substance: APIXABAN
     Indication: Prophylaxis
  3. ATORVASTATIN [Concomitant]
     Active Substance: ATORVASTATIN
  4. TICAGRELOR [Concomitant]
     Active Substance: TICAGRELOR
  5. BISOPROLOL [Concomitant]
     Active Substance: BISOPROLOL
  6. FENOFIBRATE [Concomitant]
     Active Substance: FENOFIBRATE
  7. AMLODIPINE [Concomitant]
     Active Substance: AMLODIPINE BESYLATE
  8. VALSARTAN [Concomitant]
     Active Substance: VALSARTAN
  9. HYDROCHLOROTHIAZIDE [Concomitant]
     Active Substance: HYDROCHLOROTHIAZIDE
  10. MOXONIDINE [Concomitant]
     Active Substance: MOXONIDINE
  11. RANOLAZINE [Concomitant]
     Active Substance: RANOLAZINE
  12. PANTOPRAZOLE [Concomitant]
     Active Substance: PANTOPRAZOLE
  13. INSULIN NOS [Concomitant]
     Active Substance: INSULIN NOS
  14. FUROSEMIDE [Concomitant]
     Active Substance: FUROSEMIDE

REACTIONS (1)
  - Chest pain [Recovering/Resolving]

NARRATIVE: CASE EVENT DATE: 20210418
